FAERS Safety Report 10736036 (Version 3)
Quarter: 2015Q2

REPORT INFORMATION
  Report Type: Report from Study
  Country: JP (occurrence: None)
  Receive Date: 20150121
  Receipt Date: 20150408
  Transmission Date: 20150821
  Serious: Yes (Hospitalization, Other)
  Sender: FDA-Public Use
  Company Number: 2015FE00028

PATIENT
  Age: 83 Year
  Sex: Male
  Weight: 61 kg

DRUGS (1)
  1. GONAX [Suspect]
     Active Substance: DEGARELIX
     Indication: PROSTATE CANCER METASTATIC
     Dosage: 240 MG, ONCE/SINGLE, SUBCUTANEOUS
     Route: 058
     Dates: start: 20130704, end: 20130704

REACTIONS (1)
  - Sepsis [None]

NARRATIVE: CASE EVENT DATE: 20131218
